FAERS Safety Report 18653559 (Version 1)
Quarter: 2020Q4

REPORT INFORMATION
  Report Type: Other
  Country: US (occurrence: US)
  Receive Date: 20201223
  Receipt Date: 20201223
  Transmission Date: 20210114
  Serious: Yes (Death)
  Sender: FDA-Public Use
  Company Number: US-ROCHE-2730348

PATIENT
  Sex: Female

DRUGS (2)
  1. OCREVUS [Suspect]
     Active Substance: OCRELIZUMAB
     Route: 065
     Dates: start: 2020
  2. OCREVUS [Suspect]
     Active Substance: OCRELIZUMAB
     Indication: MULTIPLE SCLEROSIS
     Dosage: PRESCRIBED WITH INFUSE 300 MG DAY 1 THEN 300 MG DAY 15 AND LATER 600 MG, EVERY 6 MONTHS?DATE OF TREA
     Route: 065
     Dates: start: 201705, end: 202007

REACTIONS (4)
  - Renal failure [Fatal]
  - Acute respiratory distress syndrome [Fatal]
  - Cardiomyopathy [Fatal]
  - COVID-19 [Fatal]
